FAERS Safety Report 14445590 (Version 2)
Quarter: 2018Q2

REPORT INFORMATION
  Report Type: Spontaneous
  Country: SE (occurrence: SE)
  Receive Date: 20180126
  Receipt Date: 20180427
  Transmission Date: 20180711
  Serious: Yes (Hospitalization, Other)
  Sender: FDA-Public Use
  Company Number: SE-BIOVITRUM-2018SE0044

PATIENT
  Age: 2 Month
  Sex: Male

DRUGS (3)
  1. KINERET [Suspect]
     Active Substance: ANAKINRA
     Indication: AUTOINFLAMMATORY DISEASE
     Dosage: 10 MG/KG/D
  2. CORTISONE [Concomitant]
     Active Substance: CORTISONE\HYDROCORTISONE
  3. KINERET [Suspect]
     Active Substance: ANAKINRA

REACTIONS (8)
  - Sepsis [Unknown]
  - Neutropenia [Unknown]
  - Venoocclusive disease [Unknown]
  - Inflammation [Unknown]
  - Diarrhoea [Unknown]
  - Histiocytosis haematophagic [Unknown]
  - Pyrexia [Unknown]
  - Bone marrow failure [Unknown]
